FAERS Safety Report 24201913 (Version 1)
Quarter: 2024Q3

REPORT INFORMATION
  Report Type: Report from Study
  Country: CN (occurrence: CN)
  Receive Date: 20240812
  Receipt Date: 20240812
  Transmission Date: 20241016
  Serious: Yes (Life-Threatening, Other)
  Sender: ELI LILLY AND CO
  Company Number: CN-ELI_LILLY_AND_COMPANY-CN202408003543

PATIENT
  Age: 49 Year
  Sex: Male

DRUGS (5)
  1. ALIMTA [Suspect]
     Active Substance: PEMETREXED DISODIUM
     Indication: Non-small cell lung cancer metastatic
     Dosage: 30 MG, TWICE WEEKLY
     Route: 050
  2. FIRMONERTINIB MESYLATE [Suspect]
     Active Substance: FIRMONERTINIB MESYLATE
     Indication: Non-small cell lung cancer metastatic
     Dosage: 160 MG, UNKNOWN
     Route: 050
  3. DEXAMETHASONE [Suspect]
     Active Substance: DEXAMETHASONE
     Indication: Non-small cell lung cancer metastatic
     Dosage: 5 MG, TWICE WEEKLY
     Route: 050
  4. FOLIC ACID [Concomitant]
     Active Substance: FOLIC ACID
     Indication: Prophylaxis
     Dosage: 1000 UG, DAILY
     Route: 048
  5. CYANOCOBALAMIN [Concomitant]
     Active Substance: CYANOCOBALAMIN
     Indication: Prophylaxis
     Dosage: 1000 UG, PRIOR TO PEMETREXED AND EVERY 9 WEEKS
     Route: 030

REACTIONS (4)
  - Rash [Unknown]
  - Nausea [Unknown]
  - Decreased appetite [Unknown]
  - Diarrhoea [Unknown]
